FAERS Safety Report 5517940-2 (Version None)
Quarter: 2007Q4

REPORT INFORMATION
  Report Type: 
  Country: None (occurrence: None)
  Receive Date: 20071115
  Receipt Date: 20071105
  Transmission Date: 20080405
  Serious: Yes (Hospitalization, Other)
  Sender: FDA-Public Use
  Company Number: PHEH2005US10700

PATIENT
  Age: 64 Year
  Sex: Male
  Weight: 103.85 kg

DRUGS (15)
  1. AREDIA [Suspect]
     Dosage: 90MG UNK
     Dates: start: 19971204
  2. ZOMETA [Suspect]
  3. THALIDOMIDE [Concomitant]
     Dosage: 200 MG, UNK
  4. NEURONTIN [Concomitant]
     Dosage: 1800 MG, UNK
  5. PAROXETINE [Concomitant]
     Dosage: 20 MG, UNK
  6. ASPIRIN [Concomitant]
  7. ALLOPURINOL [Concomitant]
     Indication: RENAL FAILURE
     Dosage: 300MG UNK
  8. ALPRAZOLAM [Concomitant]
     Indication: DEPRESSION
     Dosage: 25MCG
  9. TAGAMET [Concomitant]
  10. OSCAL [Concomitant]
  11. LODINE [Concomitant]
  12. VINCRISTINE [Concomitant]
     Dosage: 2MG
  13. DOXORUBICIN HCL [Concomitant]
  14. ADRIAMYCIN PFS [Concomitant]
     Dosage: 80MG
  15. DEXAMETHASONE [Concomitant]
     Dosage: 4MG 4 DAYS EACH MONTH

REACTIONS (14)
  - ALPHA HAEMOLYTIC STREPTOCOCCAL INFECTION [None]
  - BONE DEBRIDEMENT [None]
  - BONE DISORDER [None]
  - BONE MARROW TRANSPLANT [None]
  - DIABETES MELLITUS [None]
  - EXCESSIVE GRANULATION TISSUE [None]
  - GINGIVAL DISORDER [None]
  - HYPOAESTHESIA ORAL [None]
  - MASTICATION DISORDER [None]
  - NEPHROSCLEROSIS [None]
  - OSTEOMYELITIS [None]
  - OSTEONECROSIS [None]
  - PARAESTHESIA ORAL [None]
  - VENOUS THROMBOSIS [None]
